FAERS Safety Report 20929174 (Version 1)
Quarter: 2022Q2

REPORT INFORMATION
  Report Type: Report from Study
  Country: CH (occurrence: CH)
  Receive Date: 20220608
  Receipt Date: 20220608
  Transmission Date: 20220720
  Serious: Yes (Hospitalization)
  Sender: FDA-Public Use
  Company Number: CH-ABBVIE-21K-151-3899675-00

PATIENT
  Age: 71 Year
  Sex: Male
  Weight: 100 kg

DRUGS (3)
  1. CARBIDOPA\LEVODOPA [Suspect]
     Active Substance: CARBIDOPA\LEVODOPA
     Indication: Parkinson^s disease
     Route: 050
     Dates: start: 20140115
  2. CARBIDOPA\LEVODOPA [Suspect]
     Active Substance: CARBIDOPA\LEVODOPA
     Dosage: MD: 10.0 ML, CRD: 5.0 ML/H, CRN: 0.0 ML/H, ED: 3 ML
     Route: 050
     Dates: start: 20190513
  3. CARBIDOPA\LEVODOPA [Suspect]
     Active Substance: CARBIDOPA\LEVODOPA
     Dosage: MD: 10 ML, CRD: 5 ML/H, CRN: 0 ML/H, ED: 3 ML
     Route: 050
     Dates: start: 20210504

REACTIONS (13)
  - Fracture [Recovered/Resolved]
  - Fall [Recovered/Resolved]
  - Mobility decreased [Not Recovered/Not Resolved]
  - Disorientation [Unknown]
  - Mobility decreased [Unknown]
  - Erythema [Not Recovered/Not Resolved]
  - Fall [Not Recovered/Not Resolved]
  - Stoma site discharge [Not Recovered/Not Resolved]
  - Bradykinesia [Not Recovered/Not Resolved]
  - Freezing phenomenon [Not Recovered/Not Resolved]
  - Cognitive disorder [Unknown]
  - Stoma site discharge [Not Recovered/Not Resolved]
  - Stoma site hypergranulation [Unknown]

NARRATIVE: CASE EVENT DATE: 20210504
